FAERS Safety Report 21237716 (Version 1)
Quarter: 2022Q3

REPORT INFORMATION
  Report Type: Spontaneous
  Country: GB (occurrence: GB)
  Receive Date: 20220822
  Receipt Date: 20220822
  Transmission Date: 20221027
  Serious: Yes (Other)
  Sender: FDA-Public Use
  Company Number: GB-AMGEN-GBRSP2022141876

PATIENT
  Age: 69 Year
  Sex: Male

DRUGS (1)
  1. ARANESP [Suspect]
     Active Substance: DARBEPOETIN ALFA
     Indication: Product used for unknown indication
     Dosage: 130 MICROGRAM, QWK
     Route: 065
     Dates: end: 20220811

REACTIONS (3)
  - Aplasia pure red cell [Unknown]
  - Drug ineffective [Unknown]
  - Haemoglobin abnormal [Unknown]
